FAERS Safety Report 4400730-1 (Version None)
Quarter: 2004Q3

REPORT INFORMATION
  Report Type: 
  Country: None (occurrence: None)
  Receive Date: 20040714
  Receipt Date: 20040708
  Transmission Date: 20050211
  Serious: Yes (Other)
  Sender: FDA-Public Use
  Company Number: 2004S1000078

PATIENT
  Age: 1 Decade
  Sex: Male

DRUGS (2)
  1. INOMAX [Suspect]
     Indication: NEONATAL RESPIRATORY DISTRESS SYNDROME
     Dosage: 35 PPM; CONT; INH
     Route: 055
     Dates: start: 20040703, end: 20040704
  2. INOMAX [Suspect]
     Indication: PULMONARY HYPERTENSION
     Dosage: 35 PPM; CONT; INH
     Route: 055
     Dates: start: 20040703, end: 20040704

REACTIONS (1)
  - MEDICATION ERROR [None]
